FAERS Safety Report 23823915 (Version 1)
Quarter: 2024Q2

REPORT INFORMATION
  Report Type: Spontaneous
  Country: US (occurrence: US)
  Receive Date: 20240507
  Receipt Date: 20240507
  Transmission Date: 20240715
  Serious: No
  Sender: FDA-Public Use
  Company Number: US-IPSEN Group, Research and Development-2024-07567

PATIENT
  Age: 82 Year
  Sex: Female
  Weight: 70 kg

DRUGS (1)
  1. TAZVERIK [Suspect]
     Active Substance: TAZEMETOSTAT HYDROBROMIDE
     Indication: Neoplasm malignant
     Route: 048
     Dates: start: 20240226

REACTIONS (6)
  - Blood calcium decreased [Unknown]
  - Full blood count decreased [Unknown]
  - Blood glucose increased [Unknown]
  - Migraine [Unknown]
  - Diarrhoea [Unknown]
  - Off label use [Unknown]
